FAERS Safety Report 4276062-1 (Version None)
Quarter: 2004Q1

REPORT INFORMATION
  Report Type: 
  Country: None (occurrence: None)
  Receive Date: 20040121
  Receipt Date: 20030725
  Transmission Date: 20041129
  Serious: No
  Sender: FDA-Public Use
  Company Number: US-GLAXOSMITHKLINE-A0418643A

PATIENT
  Age: 37 Year
  Sex: Female

DRUGS (4)
  1. VALTREX [Suspect]
     Route: 048
  2. BETASERON [Concomitant]
  3. METHYLPREDNISONE [Concomitant]
  4. CIPRO [Concomitant]

REACTIONS (1)
  - HEADACHE [None]
